FAERS Safety Report 8956299 (Version 2)
Quarter: 2012Q4

REPORT INFORMATION
  Report Type: 
  Country: US (occurrence: US)
  Receive Date: 20121210
  Receipt Date: 20121221
  Transmission Date: 20130627
  Serious: Yes (Other)
  Sender: FDA-Public Use
  Company Number: US-JNJFOC-20121200115

PATIENT
  Sex: Female

DRUGS (1)
  1. REMICADE [Suspect]
     Indication: PRODUCT USED FOR UNKNOWN INDICATION
     Dosage: started 6 years ago
     Route: 042

REACTIONS (4)
  - Abscess of salivary gland [Recovered/Resolved]
  - Muscle disorder [Recovered/Resolved]
  - Wrong technique in drug usage process [Unknown]
  - Abdominal pain upper [Unknown]
